FAERS Safety Report 6518469-5 (Version None)
Quarter: 2009Q4

REPORT INFORMATION
  Report Type: 
  Country: None (occurrence: None)
  Receive Date: 20091226
  Receipt Date: 20091214
  Transmission Date: 20100525
  Serious: Yes (Other)
  Sender: FDA-Public Use
  Company Number: US-JNJFOC-20091204829

PATIENT
  Sex: Male
  Weight: 89.81 kg

DRUGS (10)
  1. DURAGESIC-100 [Suspect]
     Indication: PAIN
     Route: 062
  2. DURAGESIC-100 [Suspect]
     Route: 062
  3. ZOLOFT [Concomitant]
     Route: 048
  4. LISINOPRIL [Concomitant]
     Indication: HYPERTENSION
     Route: 048
  5. TRAMADOL HCL [Concomitant]
     Indication: SLEEP DISORDER THERAPY
     Route: 048
  6. FUROSEMIDE [Concomitant]
     Indication: DIURETIC THERAPY
     Route: 048
  7. METOPROLOL TARTRATE [Concomitant]
     Indication: BLOOD PRESSURE
     Route: 048
  8. GLIPIZIDE [Concomitant]
     Indication: DIABETES MELLITUS
     Route: 048
  9. PLAVIX [Concomitant]
     Indication: CARDIAC DISORDER
     Route: 048
  10. CONCOR [Concomitant]
     Indication: CARDIAC DISORDER
     Route: 048

REACTIONS (3)
  - HEPATIC STEATOSIS [None]
  - INADEQUATE ANALGESIA [None]
  - PAIN IN EXTREMITY [None]
